FAERS Safety Report 19441809 (Version 2)
Quarter: 2021Q3

REPORT INFORMATION
  Report Type: Spontaneous
  Country: NL (occurrence: NL)
  Receive Date: 20210621
  Receipt Date: 20210712
  Transmission Date: 20211014
  Serious: Yes (Hospitalization, Other)
  Sender: FDA-Public Use
  Company Number: NL-ACCORD-228658

PATIENT
  Age: 74 Year
  Sex: Male
  Weight: 110 kg

DRUGS (10)
  1. PFIZER?BIONTECH COVID?19 VACCINE [Suspect]
     Active Substance: TOZINAMERAN
     Indication: COVID-19 IMMUNISATION
     Dosage: INJECTION SOLUTION 0.3 ML
     Dates: start: 20210405
  2. SPIRONOLACTONE. [Concomitant]
     Active Substance: SPIRONOLACTONE
     Dosage: SPIRONOLACTONE 12.5MG 2DD1
  3. PANTOPRAZOLE [Concomitant]
     Active Substance: PANTOPRAZOLE
     Dosage: GASTRO?RESISTANT TABLET, 40 MG (MILLIGRAMS)
  4. IRBESARTAN. [Concomitant]
     Active Substance: IRBESARTAN
     Dosage: 75MG 2DD1
  5. ROSUVASTATIN/ROSUVASTATIN CALCIUM [Concomitant]
     Active Substance: ROSUVASTATIN CALCIUM
     Dosage: TABLET, 20 MG (MILLIGRAM)
  6. ISOSORBIDE. [Concomitant]
     Active Substance: ISOSORBIDE
     Dosage: MODIFIED?RELEASE CAPSULE, 50 MG (MILLIGRAMS)
  7. PARACETAMOL [Concomitant]
     Active Substance: ACETAMINOPHEN
     Dosage: 500MG 4DD2
  8. AMIODARONE [Concomitant]
     Active Substance: AMIODARONE
     Dosage: 200 MG 1 TIME PER DAY AT 0.5 TABLET
  9. DOXAZOSIN [Suspect]
     Active Substance: DOXAZOSIN MESYLATE
     Indication: HYPERTENSION
     Dosage: 2D1
     Dates: start: 201506, end: 20210406
  10. EDOXABAN [Concomitant]
     Active Substance: EDOXABAN TOSYLATE
     Dosage: 60 MG

REACTIONS (7)
  - Hypotension [Unknown]
  - Acute myocardial infarction [Recovering/Resolving]
  - Chills [Recovered/Resolved]
  - Pneumonia [Recovering/Resolving]
  - Pyrexia [Recovering/Resolving]
  - Thrombocytopenia [Unknown]
  - Vomiting [Unknown]

NARRATIVE: CASE EVENT DATE: 20210406
